FAERS Safety Report 7789046-3 (Version None)
Quarter: 2011Q3

REPORT INFORMATION
  Report Type: 
  Country: None (occurrence: None)
  Receive Date: 20110930
  Receipt Date: 20110921
  Transmission Date: 20111222
  Serious: Yes (Hospitalization, Other)
  Sender: FDA-Public Use
  Company Number: US-JNJFOC-20061202598

PATIENT
  Sex: Male

DRUGS (7)
  1. SEROQUEL [Suspect]
     Indication: BIPOLAR DISORDER
  2. RISPERDAL [Suspect]
     Indication: BIPOLAR DISORDER
     Route: 065
  3. ZYPREXA [Suspect]
     Indication: BIPOLAR DISORDER
  4. ZYPREXA [Suspect]
     Indication: SCHIZOAFFECTIVE DISORDER
  5. SEROQUEL [Suspect]
     Indication: SCHIZOAFFECTIVE DISORDER
  6. RISPERDAL [Suspect]
     Indication: SCHIZOAFFECTIVE DISORDER
     Route: 065
  7. NEURONTIN [Concomitant]

REACTIONS (2)
  - DIABETES MELLITUS [None]
  - LOSS OF CONSCIOUSNESS [None]
